FAERS Safety Report 16164937 (Version 2)
Quarter: 2019Q2

REPORT INFORMATION
  Report Type: Spontaneous
  Country: PT (occurrence: PT)
  Receive Date: 20190405
  Receipt Date: 20190528
  Transmission Date: 20190711
  Serious: Yes (Life-Threatening, Hospitalization)
  Sender: FDA-Public Use
  Company Number: PT-MYLANLABS-2019M1031321

PATIENT
  Age: 67 Year
  Sex: Male
  Weight: 78 kg

DRUGS (7)
  1. SPIRONOLACTONE. [Concomitant]
     Active Substance: SPIRONOLACTONE
     Dosage: UNK
     Dates: start: 2016
  2. ESOMEPRAZOLE. [Concomitant]
     Active Substance: ESOMEPRAZOLE MAGNESIUM
  3. PRAVASTATIN. [Concomitant]
     Active Substance: PRAVASTATIN
  4. ZYLORIC [Concomitant]
     Active Substance: ALLOPURINOL
  5. VARFINE [Concomitant]
     Active Substance: WARFARIN SODIUM
  6. BISOPROLOL [Suspect]
     Active Substance: BISOPROLOL
     Indication: HEART RATE ABNORMAL
     Dosage: 5 MG 1X/DIA
     Route: 048
     Dates: start: 20130401, end: 20180917
  7. AMIODARONE [Suspect]
     Active Substance: AMIODARONE
     Indication: HEART RATE ABNORMAL
     Dosage: 200MG 1X/DIA
     Route: 048
     Dates: start: 20130228, end: 20180917

REACTIONS (2)
  - Syncope [Recovered/Resolved]
  - Atrioventricular block complete [Recovered/Resolved with Sequelae]

NARRATIVE: CASE EVENT DATE: 20180917
